FAERS Safety Report 23762646 (Version 1)
Quarter: 2024Q2

REPORT INFORMATION
  Report Type: Spontaneous
  Country: US (occurrence: US)
  Receive Date: 20240419
  Receipt Date: 20240419
  Transmission Date: 20240716
  Serious: Yes (Other)
  Sender: FDA-Public Use
  Company Number: US-BAXTER-2024VAN016300

PATIENT

DRUGS (2)
  1. REGIOCIT [Suspect]
     Active Substance: SODIUM CHLORIDE\SODIUM CITRATE
     Dosage: UNK
     Route: 065
  2. REGIOCIT [Suspect]
     Active Substance: SODIUM CHLORIDE\SODIUM CITRATE
     Dosage: UNK (DOSE DECREASED)
     Route: 033

REACTIONS (1)
  - Laboratory test abnormal [Unknown]
